FAERS Safety Report 16930841 (Version 3)
Quarter: 2020Q4

REPORT INFORMATION
  Report Type: Spontaneous
  Country: US (occurrence: US)
  Receive Date: 20191017
  Receipt Date: 20201217
  Transmission Date: 20210113
  Serious: No
  Sender: FDA-Public Use
  Company Number: US-PFIZER INC-2019419822

PATIENT
  Age: 63 Year
  Sex: Female
  Weight: 115.65 kg

DRUGS (3)
  1. SERTRALINE HCL [Suspect]
     Active Substance: SERTRALINE HYDROCHLORIDE
     Indication: AFFECTIVE DISORDER
  2. SERTRALINE HCL [Suspect]
     Active Substance: SERTRALINE HYDROCHLORIDE
     Indication: POST-TRAUMATIC STRESS DISORDER
  3. SERTRALINE HCL [Suspect]
     Active Substance: SERTRALINE HYDROCHLORIDE
     Indication: ANXIETY
     Dosage: 25 MG, 1X/DAY
     Dates: start: 2006

REACTIONS (9)
  - Dizziness [Unknown]
  - Tremor [Unknown]
  - Insomnia [Unknown]
  - Headache [Unknown]
  - Nausea [Unknown]
  - Drug intolerance [Unknown]
  - Feeling abnormal [Unknown]
  - Nervousness [Unknown]
  - Dry mouth [Unknown]
